FAERS Safety Report 11364921 (Version 1)
Quarter: 2015Q3

REPORT INFORMATION
  Report Type: Report from Study
  Country: BR (occurrence: BR)
  Receive Date: 20150811
  Receipt Date: 20150811
  Transmission Date: 20151125
  Serious: Yes (Hospitalization)
  Sender: FDA-Public Use
  Company Number: BR-ABBVIE-15K-020-1440841-00

PATIENT
  Age: 48 Year
  Sex: Female
  Weight: 78 kg

DRUGS (5)
  1. FLURAZEPAM [Concomitant]
     Active Substance: FLURAZEPAM\FLURAZEPAM HYDROCHLORIDE
     Indication: SLEEP DISORDER THERAPY
     Route: 048
  2. CITALOPRAM [Concomitant]
     Active Substance: CITALOPRAM HYDROBROMIDE
     Indication: DEPRESSION
     Route: 048
  3. HUMIRA [Suspect]
     Active Substance: ADALIMUMAB
     Indication: RHEUMATOID ARTHRITIS
     Route: 058
     Dates: end: 201506
  4. PREDNISONE. [Concomitant]
     Active Substance: PREDNISONE
     Indication: RHEUMATOID ARTHRITIS
     Route: 048
     Dates: start: 2013
  5. HUMIRA [Suspect]
     Active Substance: ADALIMUMAB
     Route: 058
     Dates: start: 2015

REACTIONS (13)
  - Swelling [Recovered/Resolved]
  - Spinal pain [Recovered/Resolved]
  - Musculoskeletal chest pain [Recovered/Resolved]
  - Weight increased [Not Recovered/Not Resolved]
  - Retching [Unknown]
  - Ligament rupture [Not Recovered/Not Resolved]
  - Pain [Recovered/Resolved]
  - Pericardial effusion [Recovered/Resolved]
  - Cardiovascular disorder [Unknown]
  - Fall [Not Recovered/Not Resolved]
  - Vomiting [Unknown]
  - Hypertension [Not Recovered/Not Resolved]
  - Influenza [Recovered/Resolved]

NARRATIVE: CASE EVENT DATE: 201411
